FAERS Safety Report 26194341 (Version 1)
Quarter: 2025Q4

REPORT INFORMATION
  Report Type: Spontaneous
  Country: US (occurrence: US)
  Receive Date: 20251224
  Receipt Date: 20251224
  Transmission Date: 20260117
  Serious: No
  Sender: BEIGENE
  Company Number: US-BEONEMEDICINES-BGN-2025-021757

PATIENT
  Sex: Male

DRUGS (3)
  1. BRUKINSA [Suspect]
     Active Substance: ZANUBRUTINIB
     Indication: B-cell small lymphocytic lymphoma
     Dosage: 80 MILLIGRAM, BID
  2. BRUKINSA [Suspect]
     Active Substance: ZANUBRUTINIB
     Dosage: 160 MILLIGRAM, BID
  3. BRUKINSA [Suspect]
     Active Substance: ZANUBRUTINIB
     Dosage: 80 MILLIGRAM, BID

REACTIONS (4)
  - Nausea [Unknown]
  - Dizziness [Unknown]
  - Drug intolerance [Unknown]
  - Incorrect dose administered [Unknown]
